FAERS Safety Report 11233112 (Version 1)
Quarter: 2015Q3

REPORT INFORMATION
  Report Type: Spontaneous
  Country: GB (occurrence: GB)
  Receive Date: 20150701
  Receipt Date: 20150701
  Transmission Date: 20151125
  Serious: Yes (Hospitalization, Other)
  Sender: FDA-Public Use
  Company Number: GB-GLAXOSMITHKLINE-NL2015GSK007007

PATIENT
  Age: 17 Year
  Sex: Female

DRUGS (3)
  1. CONTRACEPTIVE PILL (TRADE NAME UNKNOWN) [Concomitant]
     Indication: ORAL CONTRACEPTION
     Route: 048
  2. AMITRIPTYLINE [Concomitant]
     Active Substance: AMITRIPTYLINE
     Indication: INSOMNIA
     Route: 065
  3. RANITIDINE [Suspect]
     Active Substance: RANITIDINE\RANITIDINE HYDROCHLORIDE
     Indication: IRRITABLE BOWEL SYNDROME
     Dosage: 150 MG, QD
     Route: 065

REACTIONS (11)
  - Lip blister [Recovered/Resolved]
  - Rash vesicular [Recovered/Resolved]
  - Tachycardia [Recovered/Resolved]
  - Onychomadesis [Unknown]
  - Madarosis [Unknown]
  - Pyrexia [Recovered/Resolved]
  - Rash [Recovered/Resolved]
  - Toxic epidermal necrolysis [Recovered/Resolved]
  - Mucosal erosion [Recovered/Resolved]
  - Skin disorder [Recovered/Resolved]
  - Dacryostenosis acquired [Unknown]
